FAERS Safety Report 11645567 (Version 1)
Quarter: 2015Q4

REPORT INFORMATION
  Report Type: Spontaneous
  Country: DE (occurrence: DE)
  Receive Date: 20151020
  Receipt Date: 20151020
  Transmission Date: 20160304
  Serious: Yes (Other)
  Sender: FDA-Public Use
  Company Number: DE-PFIZER INC-2015346688

PATIENT
  Age: 34 Year
  Sex: Female

DRUGS (1)
  1. SAYANA [Suspect]
     Active Substance: MEDROXYPROGESTERONE
     Indication: CONTRACEPTION
     Dosage: 8 INJECTIONS IN TOTAL
     Route: 058
     Dates: start: 201001, end: 201212

REACTIONS (4)
  - Menstrual disorder [Not Recovered/Not Resolved]
  - Infertility female [Unknown]
  - Anovulatory cycle [Not Recovered/Not Resolved]
  - Amenorrhoea [Recovered/Resolved]

NARRATIVE: CASE EVENT DATE: 201001
